FAERS Safety Report 14929483 (Version 1)
Quarter: 2018Q2

REPORT INFORMATION
  Report Type: Spontaneous
  Country: US (occurrence: US)
  Receive Date: 20180504
  Receipt Date: 20180504
  Transmission Date: 20180711
  Serious: Yes (Other)
  Sender: FDA-Public Use
  Company Number: None

PATIENT
  Age: 48 Year
  Sex: Female

DRUGS (1)
  1. COPAXONE [Suspect]
     Active Substance: GLATIRAMER ACETATE
     Indication: MULTIPLE SCLEROSIS
     Route: 058
     Dates: start: 20180201, end: 20180220

REACTIONS (4)
  - Paraesthesia [None]
  - Lip swelling [None]
  - Urticaria [None]
  - Swollen tongue [None]

NARRATIVE: CASE EVENT DATE: 20180220
